FAERS Safety Report 20575353 (Version 1)
Quarter: 2022Q1

REPORT INFORMATION
  Report Type: Spontaneous
  Country: US (occurrence: US)
  Receive Date: 20220310
  Receipt Date: 20220310
  Transmission Date: 20220424
  Serious: Yes (Other)
  Sender: FDA-Public Use
  Company Number: US-009507513-2203USA000919

PATIENT
  Age: 65 Year
  Sex: Female

DRUGS (3)
  1. KEYTRUDA [Suspect]
     Active Substance: PEMBROLIZUMAB
     Indication: Product used for unknown indication
     Dosage: UNK
  2. LUMAKRAS [Suspect]
     Active Substance: SOTORASIB
     Indication: Lung neoplasm malignant
     Dosage: 360 MILLIGRAM, QD
     Route: 048
  3. LUMAKRAS [Suspect]
     Active Substance: SOTORASIB
     Dosage: 960 MILLIGRAM, QD
     Route: 048

REACTIONS (9)
  - Neuropathy peripheral [Unknown]
  - Autoimmune disorder [Unknown]
  - Hepatic enzyme increased [Unknown]
  - Monoparesis [Unknown]
  - General physical health deterioration [Unknown]
  - Weight decreased [Unknown]
  - Off label use [Unknown]
  - Adverse drug reaction [Unknown]
  - Ill-defined disorder [Unknown]
